FAERS Safety Report 11170883 (Version 1)
Quarter: 2015Q2

REPORT INFORMATION
  Report Type: Spontaneous
  Country: US (occurrence: None)
  Receive Date: 20150515
  Receipt Date: 20150515
  Transmission Date: 20150821
  Serious: Yes (Other)
  Sender: FDA-Public Use
  Company Number: 2014012962

PATIENT
  Age: 56 Year
  Sex: Female
  Weight: 88.4 kg

DRUGS (11)
  1. ASA [Concomitant]
     Active Substance: ASPIRIN
  2. DEXILANT [Concomitant]
     Active Substance: DEXLANSOPRAZOLE
  3. FOLIC ACID. [Concomitant]
     Active Substance: FOLIC ACID
  4. HYDROCHLOROTHIAZIDE. [Concomitant]
     Active Substance: HYDROCHLOROTHIAZIDE
  5. SULFASALAZINE. [Concomitant]
     Active Substance: SULFASALAZINE
  6. CALCIUM (CALCIUM GLUCONATE) [Concomitant]
  7. MAGNESIUM (MAGNESIUM HYDROXIDE) [Concomitant]
  8. CIMZIA [Suspect]
     Active Substance: CERTOLIZUMAB PEGOL
     Indication: RHEUMATOID ARTHRITIS
     Dosage: 400 MG, EV 2 WEEKS (QOW), INDUCTION DOSES AT WEEKS 0, 2, 4, SUBCUTANEOUS
     Route: 058
     Dates: start: 2014, end: 2014
  9. VIIBRYD [Concomitant]
     Active Substance: VILAZODONE HYDROCHLORIDE
  10. LOTREL (AMLODIPINE BESILATE, BENAZEPRIL HYDROCHLORIDE) [Concomitant]
  11. LIVALO (PITAVASTATIN CALCIUM) [Concomitant]

REACTIONS (2)
  - Epistaxis [None]
  - Sinusitis [None]

NARRATIVE: CASE EVENT DATE: 20140917
